FAERS Safety Report 18716677 (Version 1)
Quarter: 2021Q1

REPORT INFORMATION
  Report Type: Spontaneous
  Country: US (occurrence: US)
  Receive Date: 20210108
  Receipt Date: 20210108
  Transmission Date: 20210419
  Serious: No
  Sender: FDA-Public Use
  Company Number: US-SA-2021SA005462

PATIENT

DRUGS (1)
  1. DUPIXENT [Suspect]
     Active Substance: DUPILUMAB
     Dosage: DRUG STRUCTURE DOSAGE :   300MG

REACTIONS (4)
  - Injection site haemorrhage [Unknown]
  - Injection site mass [Recovering/Resolving]
  - Erythema [Recovering/Resolving]
  - Injection site pain [Recovering/Resolving]
